FAERS Safety Report 15325848 (Version 4)
Quarter: 2019Q1

REPORT INFORMATION
  Report Type: Report from Study
  Country: FR (occurrence: FR)
  Receive Date: 20180828
  Receipt Date: 20190221
  Transmission Date: 20190417
  Serious: Yes (Hospitalization)
  Sender: FDA-Public Use
  Company Number: PHHO2018FR009689

PATIENT
  Age: 53 Year
  Sex: Male
  Weight: 88 kg

DRUGS (8)
  1. DEXAMETHASONE. [Concomitant]
     Active Substance: DEXAMETHASONE
     Indication: PRODUCT USED FOR UNKNOWN INDICATION
     Dosage: 40 MG
     Route: 048
     Dates: start: 20180710
  2. VINCRISTINE [Concomitant]
     Active Substance: VINCRISTINE
     Indication: PRODUCT USED FOR UNKNOWN INDICATION
     Dosage: 2 MG
     Route: 042
     Dates: start: 20180710
  3. DEPO-MEDROL [Concomitant]
     Active Substance: METHYLPREDNISOLONE ACETATE
     Indication: PRODUCT USED FOR UNKNOWN INDICATION
     Dosage: UNK
     Route: 065
  4. DALACINE [Concomitant]
     Active Substance: CLINDAMYCIN
     Indication: FEBRILE BONE MARROW APLASIA
     Dosage: 600 MG, UNK
     Route: 065
  5. AMN107 [Suspect]
     Active Substance: NILOTINIB
     Indication: PHILADELPHIA CHROMOSOME POSITIVE
     Dosage: 800 MG, UNK
     Route: 048
     Dates: start: 20180710
  6. METHOTREXATE. [Concomitant]
     Active Substance: METHOTREXATE
     Indication: CHEMOTHERAPY
     Dosage: 2250 MG, UNK
     Route: 042
     Dates: start: 20180808, end: 20180808
  7. VANCOMYCIN [Concomitant]
     Active Substance: VANCOMYCIN
     Indication: FEBRILE BONE MARROW APLASIA
     Dosage: 1750 MG, UNK
     Route: 065
     Dates: start: 20181014, end: 20181022
  8. CYTARABINE. [Concomitant]
     Active Substance: CYTARABINE
     Indication: CHEMOTHERAPY
     Dosage: 3380 MG, UNK
     Route: 042
     Dates: start: 20180808, end: 20180811

REACTIONS (2)
  - Angina pectoris [Recovered/Resolved]
  - Oropharyngeal pain [Recovered/Resolved]

NARRATIVE: CASE EVENT DATE: 20180822
